FAERS Safety Report 8908125 (Version 1)
Quarter: 2012Q4

REPORT INFORMATION
  Report Type: 
  Country: US (occurrence: US)
  Receive Date: 20121114
  Receipt Date: 20121114
  Transmission Date: 20130627
  Serious: Yes (Other)
  Sender: FDA-Public Use
  Company Number: US-BAYER-2012-116940

PATIENT
  Sex: Female

DRUGS (3)
  1. BETASERON [Suspect]
     Indication: MULTIPLE SCLEROSIS
     Dosage: UNK
     Dates: start: 20120331, end: 20120520
  2. BETASERON [Suspect]
     Indication: MULTIPLE SCLEROSIS
     Dosage: UNK
     Dates: start: 20120618, end: 20120824
  3. BETASERON [Suspect]
     Indication: MULTIPLE SCLEROSIS
     Dosage: 8 miu, QOD
     Route: 058
     Dates: start: 20120905, end: 20121102

REACTIONS (1)
  - Self injurious behaviour [Not Recovered/Not Resolved]
